FAERS Safety Report 23298227 (Version 1)
Quarter: 2023Q4

REPORT INFORMATION
  Report Type: Spontaneous
  Country: US (occurrence: None)
  Receive Date: 20231214
  Receipt Date: 20231214
  Transmission Date: 20240110
  Serious: Yes (Disabling, Other)
  Sender: FDA-Public Use
  Company Number: None

PATIENT
  Age: 68 Year
  Sex: Female
  Weight: 67.5 kg

DRUGS (7)
  1. BOTOX [Suspect]
     Active Substance: ONABOTULINUMTOXINA
     Indication: Skin cosmetic procedure
     Dates: start: 20230828, end: 20230828
  2. BOTOX [Suspect]
     Active Substance: ONABOTULINUMTOXINA
     Indication: Headache
  3. LEVOTHYROXINE [Concomitant]
     Active Substance: LEVOTHYROXINE
  4. TRAZODONE [Concomitant]
     Active Substance: TRAZODONE HYDROCHLORIDE
  5. VITAMIN D [Concomitant]
     Active Substance: VITAMIN D NOS
  6. MINERALS\VITAMINS [Concomitant]
     Active Substance: MINERALS\VITAMINS
  7. COPPER [Concomitant]
     Active Substance: COPPER

REACTIONS (15)
  - Migraine [None]
  - Fatigue [None]
  - Aphonia [None]
  - Dysphonia [None]
  - Speech disorder [None]
  - Dysphagia [None]
  - Muscular weakness [None]
  - Muscular weakness [None]
  - Loss of personal independence in daily activities [None]
  - Muscular weakness [None]
  - Dizziness [None]
  - Impaired work ability [None]
  - Vision blurred [None]
  - Nausea [None]
  - Weight decreased [None]

NARRATIVE: CASE EVENT DATE: 20230828
